FAERS Safety Report 19411994 (Version 3)
Quarter: 2021Q3

REPORT INFORMATION
  Report Type: Report from Study
  Country: FR (occurrence: FR)
  Receive Date: 20210614
  Receipt Date: 20210708
  Transmission Date: 20211014
  Serious: Yes (Hospitalization)
  Sender: FDA-Public Use
  Company Number: NVSC2021FR105195

PATIENT
  Age: 62 Year
  Sex: Male
  Weight: 78 kg

DRUGS (4)
  1. CYTARABINE. [Concomitant]
     Active Substance: CYTARABINE
     Indication: ACUTE MYELOID LEUKAEMIA
     Dosage: 100 MG/M2, QD 50 MG/M2 X2/D INDUCTION D1 D7
     Route: 058
     Dates: start: 20210402, end: 20210408
  2. ELTROMBOPAG [Suspect]
     Active Substance: ELTROMBOPAG
     Indication: ACUTE MYELOID LEUKAEMIA
     Dosage: 200 MG, QD
     Route: 048
     Dates: start: 20210412, end: 20210425
  3. DAUNORUBICIN [Concomitant]
     Active Substance: DAUNORUBICIN
     Indication: ACUTE MYELOID LEUKAEMIA
     Dosage: 60 MG/M2, QD INDUCTION D1 D3
     Route: 042
     Dates: start: 20210402, end: 20210404
  4. LOMUSTINE. [Concomitant]
     Active Substance: LOMUSTINE
     Indication: ACUTE MYELOID LEUKAEMIA
     Dosage: 200 MG/M2, QD INDUCTION D1
     Route: 048
     Dates: start: 20210402, end: 20210402

REACTIONS (2)
  - Thrombophlebitis superficial [Recovered/Resolved]
  - Thrombocytosis [Recovered/Resolved]

NARRATIVE: CASE EVENT DATE: 20210428
